FAERS Safety Report 6721538-8 (Version None)
Quarter: 2010Q2

REPORT INFORMATION
  Report Type: 
  Country: None (occurrence: None)
  Receive Date: 20100510
  Receipt Date: 20100427
  Transmission Date: 20101027
  Serious: Yes (Disabling, Other)
  Sender: FDA-Public Use
  Company Number: 009334

PATIENT
  Sex: Male
  Weight: 70 kg

DRUGS (4)
  1. VIMPAT [Suspect]
     Indication: EPILEPSY
     Dosage: (200 MG BID, ORAL), (300 MG ORAL), (INCREASED THE DOSAGE AGAIN, ORAL), (300 MG, ORAL)
     Route: 048
     Dates: start: 20091101
  2. VIMPAT [Suspect]
     Indication: EPILEPSY
     Dosage: (200 MG BID, ORAL), (300 MG ORAL), (INCREASED THE DOSAGE AGAIN, ORAL), (300 MG, ORAL)
     Route: 048
     Dates: start: 20100301
  3. KEPPRA [Concomitant]
  4. ANTELEPSIN [Concomitant]

REACTIONS (3)
  - DIARRHOEA [None]
  - DIZZINESS [None]
  - FLATULENCE [None]
